FAERS Safety Report 17861854 (Version 3)
Quarter: 2021Q3

REPORT INFORMATION
  Report Type: Report from Study
  Country: JP (occurrence: JP)
  Receive Date: 20200604
  Receipt Date: 20210708
  Transmission Date: 20211014
  Serious: Yes (Other)
  Sender: FDA-Public Use
  Company Number: JP-AMGEN-JPNCT2020036074

PATIENT
  Age: 41 Year
  Sex: Male

DRUGS (19)
  1. ROMIPLOSTIM [Suspect]
     Active Substance: ROMIPLOSTIM
     Dosage: 1800 MICROGRAM
     Route: 058
     Dates: start: 20190802, end: 20190802
  2. CICLOSPORIN [Concomitant]
     Active Substance: CYCLOSPORINE
     Indication: APLASTIC ANAEMIA
     Dosage: UNK
     Route: 048
  3. MEDICON [DEXTROMETHORPHAN HYDROBROMIDE] [Concomitant]
     Active Substance: DEXTROMETHORPHAN HYDROBROMIDE
     Indication: LYMPHADENOPATHY MEDIASTINAL
     Dosage: UNK
     Route: 048
  4. PRIMOBOLAN [METENOLONE ACETATE] [Concomitant]
     Active Substance: METHENOLONE ACETATE
     Indication: APLASTIC ANAEMIA
     Dosage: UNK
     Route: 048
  5. FAMOTIDINE. [Concomitant]
     Active Substance: FAMOTIDINE
     Indication: GASTRIC ULCER
     Dosage: UNK
     Route: 048
  6. MICARDIS [Concomitant]
     Active Substance: TELMISARTAN
     Indication: HYPERTENSION
     Dosage: UNK
     Route: 048
  7. LOXONIN [Concomitant]
     Active Substance: LOXOPROFEN SODIUM
     Indication: MYALGIA
     Dosage: UNK
     Route: 061
  8. ROMIPLOSTIM [Suspect]
     Active Substance: ROMIPLOSTIM
     Dosage: 1800 MICROGRAM, QWK
     Route: 058
     Dates: start: 20190906
  9. BONZOL [DANAZOL] [Concomitant]
     Indication: APLASTIC ANAEMIA
     Dosage: UNK
     Route: 048
  10. MOHRUS [Concomitant]
     Active Substance: KETOPROFEN
     Indication: MYALGIA
     Dosage: UNK
  11. LEVOFLOXACIN HEMIHYDRATE [Concomitant]
     Active Substance: LEVOFLOXACIN
     Indication: RETINAL HAEMORRHAGE
     Dosage: UNK
     Route: 047
  12. HEMOPORISON [Concomitant]
     Indication: ANAL FISSURE
     Dosage: UNK
     Route: 061
  13. AZUNOL GARGLE LIQUID [Concomitant]
     Active Substance: SODIUM GUALENATE MONOHYDRATE
     Indication: STOMATITIS
     Dosage: UNK
     Route: 049
  14. ASTOMIN [DIMEMORFAN PHOSPHATE] [Concomitant]
     Active Substance: DIMEMORFAN PHOSPHATE
     Indication: LYMPHADENOPATHY MEDIASTINAL
     Dosage: UNK
     Route: 048
  15. JADENU [Concomitant]
     Active Substance: DEFERASIROX
     Indication: IRON OVERLOAD
     Dosage: UNK
     Route: 048
  16. ROMIPLOSTIM [Suspect]
     Active Substance: ROMIPLOSTIM
     Indication: APLASTIC ANAEMIA
     Dosage: 1800 MICROGRAM, QWK
     Route: 058
     Dates: start: 20190712, end: 20190719
  17. LEVOFLOXACIN HEMIHYDRATE [Concomitant]
     Active Substance: LEVOFLOXACIN
     Indication: LYMPHADENOPATHY MEDIASTINAL
     Dosage: UNK
     Route: 048
  18. LEVOFLOXACIN HEMIHYDRATE [Concomitant]
     Active Substance: LEVOFLOXACIN
     Dosage: UNK
     Route: 047
  19. REVOLADE [Suspect]
     Active Substance: ELTROMBOPAG OLAMINE
     Indication: APLASTIC ANAEMIA
     Dosage: UNK
     Route: 048

REACTIONS (9)
  - Myalgia [Recovered/Resolved]
  - Iron overload [Not Recovered/Not Resolved]
  - Stomatitis [Recovering/Resolving]
  - Cerebral haemorrhage [Recovering/Resolving]
  - Lymphadenopathy mediastinal [Recovering/Resolving]
  - Retinal haemorrhage [Recovering/Resolving]
  - Ear discomfort [Recovered/Resolved]
  - Haemorrhoids [Unknown]
  - Anal fissure [Recovering/Resolving]

NARRATIVE: CASE EVENT DATE: 20190906
